FAERS Safety Report 10334133 (Version 1)
Quarter: 2014Q3

REPORT INFORMATION
  Report Type: Spontaneous
  Country: US (occurrence: None)
  Receive Date: 20140721
  Receipt Date: 20140721
  Transmission Date: 20150326
  Serious: No
  Sender: FDA-Public Use
  Company Number: None

PATIENT
  Age: 53 Year
  Sex: Female
  Weight: 61.24 kg

DRUGS (2)
  1. PREDNISOLONE ACETATE. [Suspect]
     Active Substance: PREDNISOLONE ACETATE
     Indication: CORNEAL GRAFT REJECTION
     Dosage: ONE DROP FOUR TIMES DAILY INTO THE EYE
     Route: 047
     Dates: start: 20140630, end: 20140718
  2. PREDNISOLONE ACETATE. [Suspect]
     Active Substance: PREDNISOLONE ACETATE
     Indication: PROPHYLAXIS
     Dosage: ONE DROP FOUR TIMES DAILY INTO THE EYE
     Route: 047
     Dates: start: 20140630, end: 20140718

REACTIONS (6)
  - Eye irritation [None]
  - Ocular hyperaemia [None]
  - Eye pruritus [None]
  - Eyelid pain [None]
  - Lacrimation increased [None]
  - Eye pain [None]

NARRATIVE: CASE EVENT DATE: 20140630
